FAERS Safety Report 17793665 (Version 2)
Quarter: 2020Q2

REPORT INFORMATION
  Report Type: Spontaneous
  Country: US (occurrence: US)
  Receive Date: 20200515
  Receipt Date: 20200625
  Transmission Date: 20200714
  Serious: No
  Sender: FDA-Public Use
  Company Number: US-PFIZER INC-2020180960

PATIENT
  Age: 10 Year
  Sex: Female
  Weight: 23.59 kg

DRUGS (2)
  1. GENOTROPIN [Suspect]
     Active Substance: SOMATROPIN
     Indication: GROWTH DISORDER
     Dosage: UNK UNK, 1X/DAY
  2. GENOTROPIN [Suspect]
     Active Substance: SOMATROPIN
     Dosage: ALTERNATING DOSE OF 0.8MG AND 1MG

REACTIONS (3)
  - Device leakage [Unknown]
  - Intentional device misuse [Unknown]
  - Underdose [Unknown]

NARRATIVE: CASE EVENT DATE: 2020
